FAERS Safety Report 9293256 (Version 1)
Quarter: 2013Q2

REPORT INFORMATION
  Report Type: Spontaneous
  Country: JP (occurrence: JP)
  Receive Date: 20130516
  Receipt Date: 20130516
  Transmission Date: 20140414
  Serious: Yes (Hospitalization)
  Sender: FDA-Public Use
  Company Number: JP-ELI_LILLY_AND_COMPANY-JP201210004553

PATIENT
  Sex: Female

DRUGS (3)
  1. FORTEO [Suspect]
     Dosage: UNK
     Route: 058
     Dates: start: 20120929
  2. FORTEO [Suspect]
     Route: 058
  3. FORTEO [Suspect]
     Route: 058

REACTIONS (4)
  - Nasopharyngitis [Unknown]
  - Injection site bruising [Unknown]
  - Incorrect storage of drug [Recovered/Resolved]
  - Medication error [Recovered/Resolved]
